FAERS Safety Report 5536239-1 (Version None)
Quarter: 2007Q4

REPORT INFORMATION
  Report Type: 
  Country: None (occurrence: None)
  Receive Date: 20071206
  Receipt Date: 20071130
  Transmission Date: 20080405
  Serious: Yes (Other)
  Sender: FDA-Public Use
  Company Number: US-WYE-H00623907

PATIENT
  Age: 21 Year
  Sex: Female
  Weight: 97.61 kg

DRUGS (5)
  1. EFFEXOR XR [Suspect]
     Route: 048
     Dates: start: 20020717
  2. EFFEXOR XR [Suspect]
     Dosage: TAPERED TO 37.5 MG
     Route: 048
     Dates: end: 20071009
  3. EFFEXOR XR [Suspect]
     Route: 048
     Dates: start: 20071010, end: 20071001
  4. NEXIUM [Concomitant]
     Dosage: UNKNOWN
  5. WELLBUTRIN [Concomitant]
     Dosage: ^150^
     Dates: start: 20070601, end: 20071001

REACTIONS (1)
  - BENIGN INTRACRANIAL HYPERTENSION [None]
